FAERS Safety Report 7339955-4 (Version None)
Quarter: 2011Q1

REPORT INFORMATION
  Report Type: 
  Country: None (occurrence: None)
  Receive Date: 20110309
  Receipt Date: 20110304
  Transmission Date: 20110831
  Serious: Yes (Other)
  Sender: FDA-Public Use
  Company Number: US-PFIZER INC-2010140503

PATIENT
  Sex: Female

DRUGS (4)
  1. LYRICA [Suspect]
     Indication: PAIN
     Dosage: 50 MG, 1X/DAY
     Route: 048
     Dates: start: 20081017, end: 20090107
  2. LEXAPRO [Concomitant]
     Indication: ANXIETY
     Dosage: 10 MG, UNK
     Dates: start: 20081124, end: 20081205
  3. GABAPENTIN [Concomitant]
     Indication: PAIN
     Dosage: 300 MG, 2X/DAY
     Dates: start: 20090605, end: 20090802
  4. CELEBREX [Concomitant]
     Indication: PAIN
     Dosage: 200 MG, UNK
     Dates: start: 20090427, end: 20100920

REACTIONS (1)
  - ALOPECIA [None]
